FAERS Safety Report 24460487 (Version 1)
Quarter: 2024Q4

REPORT INFORMATION
  Report Type: Report from Study
  Country: US (occurrence: US)
  Receive Date: 20241018
  Receipt Date: 20241018
  Transmission Date: 20250115
  Serious: No
  Sender: ROCHE
  Company Number: US-ROCHE-3557365

PATIENT
  Age: 39 Year
  Sex: Male

DRUGS (3)
  1. RITUXAN [Suspect]
     Active Substance: RITUXIMAB
     Indication: Nodular lymphocyte predominant Hodgkin lymphoma
     Dosage: ONCE, DATE OF SERVICE: 29/APR/2024, ONCE IN 4 HOURS
     Route: 042
     Dates: start: 20240429
  2. RITUXAN [Suspect]
     Active Substance: RITUXIMAB
     Dosage: ONCE OVER 4 HOURS
     Route: 042
  3. RITUXAN HYCELA [Suspect]
     Active Substance: HYALURONIDASE (HUMAN RECOMBINANT)\RITUXIMAB
     Indication: Nodular lymphocyte predominant Hodgkin lymphoma
     Route: 058

REACTIONS (2)
  - Off label use [Unknown]
  - No adverse event [Unknown]
